FAERS Safety Report 4815929-X (Version None)
Quarter: 2005Q4

REPORT INFORMATION
  Report Type: 
  Country: None (occurrence: None)
  Receive Date: 20051027
  Receipt Date: 20051012
  Transmission Date: 20060501
  Serious: Yes (Hospitalization)
  Sender: FDA-Public Use
  Company Number: S05-SWI-03869-01

PATIENT
  Age: 55 Year
  Sex: Female

DRUGS (4)
  1. ESCITALOPRAM OXALATE [Suspect]
     Indication: DEPRESSION
     Dosage: 10 MG QD PO
     Route: 048
     Dates: end: 20050603
  2. NEXIUM [Concomitant]
  3. ZOLOFT [Concomitant]
  4. SEROQUEL [Concomitant]

REACTIONS (4)
  - ABDOMINAL PAIN UPPER [None]
  - BLOOD AMYLASE INCREASED [None]
  - GAMMA-GLUTAMYLTRANSFERASE INCREASED [None]
  - LIPASE INCREASED [None]
